FAERS Safety Report 26106082 (Version 1)
Quarter: 2025Q4

REPORT INFORMATION
  Report Type: Spontaneous
  Country: US (occurrence: US)
  Receive Date: 20251201
  Receipt Date: 20251201
  Transmission Date: 20260118
  Serious: Yes (Death, Hospitalization, Other)
  Sender: ACCORD
  Company Number: US-Accord-515203

PATIENT
  Age: 70 Year
  Sex: Male

DRUGS (11)
  1. ETOPOSIDE [Suspect]
     Active Substance: ETOPOSIDE
     Indication: Haemophagocytic lymphohistiocytosis
  2. CYTARABINE [Suspect]
     Active Substance: CYTARABINE
     Indication: Haemophagocytic lymphohistiocytosis
  3. DEXAMETHASONE [Suspect]
     Active Substance: DEXAMETHASONE
     Indication: Haemophagocytic lymphohistiocytosis
  4. ACYCLOVIR [Concomitant]
     Active Substance: ACYCLOVIR
     Indication: Antibiotic prophylaxis
  5. ALLOPURINOL [Concomitant]
     Active Substance: ALLOPURINOL
     Indication: Tumour lysis syndrome
  6. BACTRIM [Concomitant]
     Active Substance: SULFAMETHOXAZOLE\TRIMETHOPRIM
     Indication: Antibiotic prophylaxis
  7. MEROPENEM [Concomitant]
     Active Substance: MEROPENEM
     Indication: Sepsis
  8. METHYLPREDNISOLONE [Concomitant]
     Active Substance: METHYLPREDNISOLONE
     Indication: Hypothermia
     Dosage: PULSE DOSE
  9. MICAFUNGIN [Concomitant]
     Active Substance: MICAFUNGIN SODIUM
     Indication: Antibiotic prophylaxis
  10. RASBURICASE [Concomitant]
     Active Substance: RASBURICASE
     Indication: Tumour lysis syndrome
  11. ETOPOSIDE [Suspect]
     Active Substance: ETOPOSIDE
     Indication: Haemophagocytic lymphohistiocytosis

REACTIONS (3)
  - Multiple organ dysfunction syndrome [Fatal]
  - Neutropenic sepsis [Unknown]
  - Off label use [Unknown]
